FAERS Safety Report 11340867 (Version 3)
Quarter: 2015Q3

REPORT INFORMATION
  Report Type: Spontaneous
  Country: US (occurrence: US)
  Receive Date: 20150805
  Receipt Date: 20150813
  Transmission Date: 20151125
  Serious: No
  Sender: FDA-Public Use
  Company Number: US-PFIZER INC-2015259664

PATIENT
  Age: 51 Year
  Sex: Male
  Weight: 120 kg

DRUGS (3)
  1. LATANOPROST. [Suspect]
     Active Substance: LATANOPROST
     Dosage: UNK
  2. XALATAN [Suspect]
     Active Substance: LATANOPROST
     Dosage: UNK
  3. XAL-EASE [Suspect]
     Active Substance: DEVICE
     Dosage: UNK

REACTIONS (3)
  - Administration site injury [Unknown]
  - Device physical property issue [Unknown]
  - Tremor [Unknown]
